FAERS Safety Report 5313517-2 (Version None)
Quarter: 2007Q2

REPORT INFORMATION
  Report Type: 
  Country: None (occurrence: None)
  Receive Date: 20070501
  Receipt Date: 20070413
  Transmission Date: 20071010
  Serious: Yes (Hospitalization, Other)
  Sender: FDA-Public Use
  Company Number: JP-BRISTOL-MYERS SQUIBB COMPANY-12317103

PATIENT
  Age: 30 Year
  Sex: Male

DRUGS (7)
  1. BRIPLATIN [Suspect]
     Indication: LUNG ADENOCARCINOMA
     Dosage: 1ST COURSE ON 16APR02 (80 MG.M2)
     Route: 042
     Dates: start: 20020520, end: 20020520
  2. NAVELBINE [Suspect]
     Indication: LUNG ADENOCARCINOMA
     Dosage: 1ST COURSE ON 16APR02
     Route: 042
     Dates: start: 20020520, end: 20020520
  3. RADIOTHERAPY [Concomitant]
     Dosage: DOSAGE FORM = GY
     Dates: start: 20020418
  4. GASTER [Concomitant]
     Route: 048
     Dates: start: 20020304, end: 20020620
  5. ALLOID [Concomitant]
     Route: 048
     Dates: start: 20020520, end: 20020531
  6. MAGNESIUM OXIDE [Concomitant]
     Route: 048
     Dates: start: 20020305, end: 20020521
  7. MS CONTIN [Concomitant]
     Route: 048
     Dates: start: 20020524

REACTIONS (6)
  - DIARRHOEA [None]
  - DISSEMINATED INTRAVASCULAR COAGULATION [None]
  - GASTROINTESTINAL OEDEMA [None]
  - NEUTROPENIC COLITIS [None]
  - NEUTROPHIL COUNT DECREASED [None]
  - PLATELET COUNT DECREASED [None]
